FAERS Safety Report 8747455 (Version 4)
Quarter: 2013Q1

REPORT INFORMATION
  Report Type: Spontaneous
  Country: US (occurrence: US)
  Receive Date: 20120827
  Receipt Date: 20130322
  Transmission Date: 20140127
  Serious: Yes (Other)
  Sender: FDA-Public Use
  Company Number: US-PFIZER INC-2012206438

PATIENT
  Age: 84 Year
  Sex: Male
  Weight: 73.47 kg

DRUGS (9)
  1. LYRICA [Suspect]
     Indication: NEUROPATHY PERIPHERAL
     Dosage: 75 MG, 2X/DAY
     Route: 048
     Dates: start: 2011
  2. LYRICA [Suspect]
     Indication: PRURITUS
     Dosage: 75 MG, 2X/DAY
     Dates: start: 201110
  3. LYRICA [Suspect]
     Indication: SLEEP DISORDER
  4. WARFARIN [Concomitant]
     Dosage: UNK
  5. DIGOXIN [Concomitant]
     Dosage: UNK
  6. NYSTATIN [Concomitant]
     Dosage: UNK
  7. VASOTEC [Concomitant]
     Indication: HYPERTENSION
     Dosage: 20 MG, 2X/DAY
  8. TENORMIN [Concomitant]
     Indication: HYPERTENSION
     Dosage: UNK
  9. COUMADINE [Concomitant]
     Dosage: UNK

REACTIONS (10)
  - Blood pressure fluctuation [Unknown]
  - Myalgia [Unknown]
  - Gait disturbance [Unknown]
  - Joint swelling [Unknown]
  - Local swelling [Not Recovered/Not Resolved]
  - Joint swelling [Unknown]
  - Erythema [Unknown]
  - Local swelling [Unknown]
  - Gait disturbance [Unknown]
  - Off label use [Unknown]
